FAERS Safety Report 4824052-X (Version None)
Quarter: 2005Q4

REPORT INFORMATION
  Report Type: 
  Country: None (occurrence: None)
  Receive Date: 20051108
  Receipt Date: 20051031
  Transmission Date: 20060501
  Serious: Yes (Life-Threatening, Hospitalization, Other)
  Sender: FDA-Public Use
  Company Number: US_0507120424

PATIENT
  Age: 63 Year
  Sex: Female
  Weight: 75 kg

DRUGS (5)
  1. HUMULIN N [Suspect]
     Indication: DIABETES MELLITUS
     Dosage: 50 U/DAY
     Dates: start: 19980101, end: 20000301
  2. ILETIN II [Suspect]
     Indication: DIABETES MELLITUS
     Dates: start: 20000301
  3. ILETIN I [Suspect]
     Indication: DIABETES MELLITUS
     Dosage: 55 U/DAY
     Dates: start: 20000301
  4. NPH ILETIN I (BEEF-PORK) [Suspect]
     Indication: DIABETES MELLITUS
     Dates: end: 19980101
  5. REGULAR ILETIN II [Suspect]
     Indication: DIABETES MELLITUS
     Dates: end: 19980101

REACTIONS (11)
  - ANGER [None]
  - CARDIAC ARREST [None]
  - CEREBROVASCULAR ACCIDENT [None]
  - FEELING COLD [None]
  - HALLUCINATION [None]
  - LOSS OF CONSCIOUSNESS [None]
  - MORBID THOUGHTS [None]
  - PERSONALITY CHANGE [None]
  - RESPIRATORY ARREST [None]
  - VISION BLURRED [None]
  - WRONG DRUG ADMINISTERED [None]
